FAERS Safety Report 7284019-1 (Version None)
Quarter: 2011Q1

REPORT INFORMATION
  Report Type: 
  Country: None (occurrence: None)
  Receive Date: 20110209
  Receipt Date: 20110128
  Transmission Date: 20110831
  Serious: Yes (Death, Life-Threatening, Other)
  Sender: FDA-Public Use
  Company Number: US-NAPPMUNDI-MAG-2011-0001390

PATIENT
  Age: 74 Year
  Sex: Female
  Weight: 72 kg

DRUGS (5)
  1. SYNTHROID [Concomitant]
     Dosage: 0.15 MG, UNK
     Route: 065
  2. CHLORPROPAMIDE [Concomitant]
     Dosage: 250 MG, UNK
     Route: 065
  3. POTASSIUM                          /00031402/ [Concomitant]
     Route: 048
  4. POVIDONE IODINE [Suspect]
     Indication: WOUND TREATMENT
  5. HYDROCHLOROTHIAZIDE [Concomitant]
     Dosage: 100 MG, UNK
     Route: 065

REACTIONS (12)
  - RESPIRATION ABNORMAL [None]
  - PULSE ABSENT [None]
  - CONJUNCTIVITIS [None]
  - BODY TEMPERATURE INCREASED [None]
  - UNRESPONSIVE TO STIMULI [None]
  - PRODUCTIVE COUGH [None]
  - TACHYPNOEA [None]
  - VOMITING [None]
  - OVERDOSE [None]
  - RHINORRHOEA [None]
  - METABOLIC ACIDOSIS [None]
  - CARDIO-RESPIRATORY ARREST [None]
